FAERS Safety Report 16834377 (Version 3)
Quarter: 2019Q4

REPORT INFORMATION
  Report Type: Report from Study
  Country: JP (occurrence: JP)
  Receive Date: 20190920
  Receipt Date: 20191010
  Transmission Date: 20200122
  Serious: Yes (Hospitalization)
  Sender: FDA-Public Use
  Company Number: JP-EISAI MEDICAL RESEARCH-EC-2019-062300

PATIENT
  Age: 39 Year
  Sex: Female
  Weight: 64 kg

DRUGS (11)
  1. PERAMPANEL [Suspect]
     Active Substance: PERAMPANEL
     Route: 048
     Dates: start: 20190805, end: 20190811
  2. LAXOBERON [Concomitant]
     Active Substance: SODIUM PICOSULFATE
  3. PERAMPANEL [Suspect]
     Active Substance: PERAMPANEL
     Route: 048
     Dates: start: 20190914, end: 20190917
  4. PERAMPANEL [Suspect]
     Active Substance: PERAMPANEL
     Route: 048
     Dates: start: 20190830, end: 20190913
  5. PHENOBAL [Concomitant]
     Active Substance: PHENOBARBITAL
  6. POSTERISAN [Concomitant]
     Active Substance: LIDOCAINE
  7. PERAMPANEL [Suspect]
     Active Substance: PERAMPANEL
     Indication: EPILEPSY
     Route: 048
     Dates: start: 20190729, end: 20190804
  8. PERAMPANEL [Suspect]
     Active Substance: PERAMPANEL
     Route: 048
     Dates: start: 20190812, end: 20190828
  9. SELENICA-R [Concomitant]
     Active Substance: VALPROATE SODIUM
  10. MAGNESIUM OXIDE. [Concomitant]
     Active Substance: MAGNESIUM OXIDE
  11. PERAMPANEL [Suspect]
     Active Substance: PERAMPANEL
     Route: 048
     Dates: start: 20190829, end: 20190829

REACTIONS (1)
  - Dehydration [Recovered/Resolved]

NARRATIVE: CASE EVENT DATE: 20190913
